FAERS Safety Report 20392999 (Version 4)
Quarter: 2024Q4

REPORT INFORMATION
  Report Type: Report from Study
  Country: DE (occurrence: DE)
  Receive Date: 20220128
  Receipt Date: 20241120
  Transmission Date: 20250115
  Serious: No
  Sender: TAKEDA
  Company Number: DE-TAKEDA-2022TUS004213

PATIENT
  Age: 41 Year
  Sex: Female

DRUGS (11)
  1. TEDUGLUTIDE [Suspect]
     Active Substance: TEDUGLUTIDE
     Indication: Short-bowel syndrome
     Dosage: 5 MILLIGRAM, QD
     Dates: start: 20150410
  2. TEDUGLUTIDE [Suspect]
     Active Substance: TEDUGLUTIDE
  3. TEDUGLUTIDE [Suspect]
     Active Substance: TEDUGLUTIDE
  4. TEDUGLUTIDE [Suspect]
     Active Substance: TEDUGLUTIDE
  5. IMDEVIMAB [Concomitant]
     Active Substance: IMDEVIMAB
     Indication: COVID-19
     Dosage: 999 UNK
  6. RIFAXIMAX [Concomitant]
     Indication: Diarrhoea
     Dosage: 400 MILLIGRAM, BID
     Dates: start: 201902
  7. TINCTURA ABSINTHI [Concomitant]
     Indication: Gastroenteritis radiation
     Dosage: 100 MILLIGRAM, Q6HR
     Dates: start: 201511, end: 201701
  8. TINCTURA ABSINTHI [Concomitant]
     Dosage: 200 MILLIGRAM, Q6HR
     Dates: start: 201701
  9. COTRIM [Concomitant]
     Active Substance: SULFAMETHOXAZOLE\TRIMETHOPRIM
     Indication: Urinary tract infection
     Dosage: 999 UNK
  10. IMODIUM [Concomitant]
     Active Substance: LOPERAMIDE HYDROCHLORIDE
     Indication: Bowel movement irregularity
     Dosage: UNK
  11. PSYLLIUM HUSKS [Concomitant]
     Active Substance: PSYLLIUM HUSK
     Indication: Bowel movement irregularity
     Dosage: UNK UNK, BID
     Dates: start: 20230203

REACTIONS (2)
  - Heart rate abnormal [Recovered/Resolved]
  - Oedema [Recovered/Resolved]

NARRATIVE: CASE EVENT DATE: 20210305
